FAERS Safety Report 7459398-2 (Version None)
Quarter: 2011Q2

REPORT INFORMATION
  Report Type: 
  Country: None (occurrence: None)
  Receive Date: 20110505
  Receipt Date: 20110420
  Transmission Date: 20111010
  Serious: No
  Sender: FDA-Public Use
  Company Number: US-JNJFOC-20110311879

PATIENT
  Sex: Female
  Weight: 70.31 kg

DRUGS (7)
  1. DURAGESIC [Suspect]
     Indication: NECK PAIN
     Route: 062
  2. DURAGESIC [Suspect]
     Route: 062
  3. DURAGESIC [Suspect]
     Route: 062
  4. DURAGESIC [Suspect]
     Route: 062
  5. PERCOCET [Concomitant]
     Indication: PAIN
     Dosage: 5/325MG/TABLET
  6. DURAGESIC [Suspect]
     Route: 062
  7. NEURONTIN [Concomitant]
     Indication: NEURALGIA

REACTIONS (4)
  - WITHDRAWAL SYNDROME [None]
  - VOMITING [None]
  - DRUG DOSE OMISSION [None]
  - DRUG INEFFECTIVE [None]
